FAERS Safety Report 8181671-3 (Version None)
Quarter: 2012Q1

REPORT INFORMATION
  Report Type: 
  Country: None (occurrence: None)
  Receive Date: 20120302
  Receipt Date: 20111019
  Transmission Date: 20120608
  Serious: Yes (Other)
  Sender: FDA-Public Use
  Company Number: JP-PFIZER INC-2012053998

PATIENT
  Age: 55 Year
  Sex: Male

DRUGS (1)
  1. MIGLITOL [Suspect]
     Dosage: DAILY DOSE 150 MG
     Route: 048

REACTIONS (1)
  - PNEUMATOSIS INTESTINALIS [None]
